FAERS Safety Report 15516480 (Version 1)
Quarter: 2018Q4

REPORT INFORMATION
  Report Type: Spontaneous
  Country: US (occurrence: US)
  Receive Date: 20181017
  Receipt Date: 20181017
  Transmission Date: 20190205
  Serious: Yes (Other)
  Sender: FDA-Public Use
  Company Number: US-APOPHARMA USA, INC.-2018AP022448

PATIENT
  Age: 4 Month
  Sex: Female

DRUGS (1)
  1. ALKERAN [Suspect]
     Active Substance: MELPHALAN
     Indication: RETINOBLASTOMA
     Dosage: 5 MG, OTHER
     Route: 013

REACTIONS (2)
  - Retinal ischaemia [Recovering/Resolving]
  - Retinal pigment epitheliopathy [Recovering/Resolving]
